FAERS Safety Report 14599508 (Version 1)
Quarter: 2018Q1

REPORT INFORMATION
  Report Type: Other
  Country: US (occurrence: US)
  Receive Date: 20180305
  Receipt Date: 20180305
  Transmission Date: 20180509
  Serious: Yes (Hospitalization, Other)
  Sender: FDA-Public Use
  Company Number: US-ACTELION-A-CH2018-168183

PATIENT
  Age: 29 Year
  Sex: Female

DRUGS (3)
  1. ILOPROST. [Concomitant]
     Active Substance: ILOPROST
  2. EPOPROSTENOL SODIUM. [Suspect]
     Active Substance: EPOPROSTENOL SODIUM
     Indication: PULMONARY ARTERIAL HYPERTENSION
     Route: 042
  3. NITRIC OXIDE. [Concomitant]
     Active Substance: NITRIC OXIDE
     Route: 055

REACTIONS (7)
  - Lung transplant [Recovered/Resolved]
  - Venous oxygen saturation decreased [Unknown]
  - Haemoptysis [Unknown]
  - Therapeutic product ineffective [Unknown]
  - Pulmonary arterial pressure abnormal [Unknown]
  - Blood lactic acid increased [Unknown]
  - Thrombocytopenia [Unknown]
